FAERS Safety Report 24443225 (Version 2)
Quarter: 2025Q3

REPORT INFORMATION
  Report Type: Spontaneous
  Country: EU (occurrence: EU)
  Receive Date: 20241016
  Receipt Date: 20250919
  Transmission Date: 20251020
  Serious: Yes (Hospitalization, Other)
  Sender: ROCHE
  Company Number: EU-ROCHE-1358631

PATIENT
  Age: 52 Year
  Sex: Male
  Weight: 105.0 kg

DRUGS (6)
  1. MYCOPHENOLATE MOFETIL [Suspect]
     Active Substance: MYCOPHENOLATE MOFETIL
     Indication: Pemphigoid
     Route: 050
  2. MYCOPHENOLATE MOFETIL [Suspect]
     Active Substance: MYCOPHENOLATE MOFETIL
     Route: 050
  3. MYCOPHENOLATE MOFETIL [Suspect]
     Active Substance: MYCOPHENOLATE MOFETIL
     Route: 050
  4. CLOBETASOL PROPIONATE [Suspect]
     Active Substance: CLOBETASOL PROPIONATE
     Indication: Pemphigoid
     Route: 061
  5. PREDNISONE [Suspect]
     Active Substance: PREDNISONE
     Indication: Pemphigoid
     Route: 050
  6. PREDNISONE [Suspect]
     Active Substance: PREDNISONE
     Route: 050

REACTIONS (3)
  - Necrotising fasciitis [Recovered/Resolved with Sequelae]
  - Off label use [Unknown]
  - Lymphoedema [Unknown]
